FAERS Safety Report 23973128 (Version 1)
Quarter: 2024Q2

REPORT INFORMATION
  Report Type: Other
  Country: GB (occurrence: GB)
  Receive Date: 20240613
  Receipt Date: 20240613
  Transmission Date: 20240716
  Serious: Yes (Life-Threatening, Other)
  Sender: FDA-Public Use
  Company Number: None

PATIENT
  Age: 63 Year
  Sex: Female
  Weight: 99.2 kg

DRUGS (1)
  1. OMNIPAQUE [Suspect]
     Active Substance: IOHEXOL
     Indication: Angiogram
     Dosage: 260 ML, TOTAL
     Route: 013
     Dates: start: 20240207, end: 20240207

REACTIONS (2)
  - Contrast encephalopathy [Recovering/Resolving]
  - Infarction [Unknown]

NARRATIVE: CASE EVENT DATE: 20240319
